FAERS Safety Report 8654737 (Version 2)
Quarter: 2013Q2

REPORT INFORMATION
  Report Type: Spontaneous
  Country: US (occurrence: US)
  Receive Date: 20120709
  Receipt Date: 20130531
  Transmission Date: 20140414
  Serious: Yes (Other)
  Sender: FDA-Public Use
  Company Number: US-ROCHE-784183

PATIENT
  Sex: Female
  Weight: 52.21 kg

DRUGS (6)
  1. ACCUTANE [Suspect]
     Indication: ACNE
     Route: 065
     Dates: start: 200107, end: 200201
  2. ACCUTANE [Suspect]
     Route: 065
     Dates: start: 200207, end: 200301
  3. TORADOL [Concomitant]
  4. BENTYL [Concomitant]
  5. PHENERGAN [Concomitant]
  6. ESTROSTEP [Concomitant]

REACTIONS (5)
  - Crohn^s disease [Unknown]
  - Inflammatory bowel disease [Unknown]
  - Stress [Unknown]
  - Intestinal obstruction [Unknown]
  - Irritable bowel syndrome [Unknown]
